FAERS Safety Report 10439764 (Version 3)
Quarter: 2014Q4

REPORT INFORMATION
  Report Type: Spontaneous
  Country: US (occurrence: US)
  Receive Date: 20140908
  Receipt Date: 20141205
  Transmission Date: 20150528
  Serious: No
  Sender: FDA-Public Use
  Company Number: US-BRISTOL-MYERS SQUIBB COMPANY-20016788

PATIENT
  Age: 41 Year
  Sex: Female

DRUGS (3)
  1. ALEVE [Concomitant]
     Active Substance: NAPROXEN SODIUM
     Indication: PAIN
  2. ABILIFY [Suspect]
     Active Substance: ARIPIPRAZOLE
     Indication: DEPRESSION
     Dosage: 2011-20DEC2013
     Route: 048
     Dates: start: 2004, end: 20131220
  3. WELLBUTRIN [Concomitant]
     Active Substance: BUPROPION HYDROCHLORIDE

REACTIONS (18)
  - Sleep disorder [Unknown]
  - Vision blurred [Unknown]
  - Memory impairment [Unknown]
  - Fibromyalgia [Unknown]
  - Paraesthesia [Unknown]
  - Feeling jittery [Unknown]
  - Peripheral swelling [Unknown]
  - Weight fluctuation [Unknown]
  - Abdominal discomfort [Unknown]
  - Libido decreased [Unknown]
  - Migraine [Unknown]
  - Anxiety [Unknown]
  - Abdominal pain [Unknown]
  - Hypoaesthesia [Unknown]
  - Constipation [Unknown]
  - Asthenia [Unknown]
  - Breast mass [Unknown]
  - Abdominal discomfort [Unknown]

NARRATIVE: CASE EVENT DATE: 2012
